FAERS Safety Report 5372313-0 (Version None)
Quarter: 2007Q2

REPORT INFORMATION
  Report Type: 
  Country: None (occurrence: None)
  Receive Date: 20070620
  Receipt Date: 20070402
  Transmission Date: 20071010
  Serious: No
  Sender: FDA-Public Use
  Company Number: 2007RL000138

PATIENT
  Age: 79 Year
  Sex: Female
  Weight: 73.9363 kg

DRUGS (4)
  1. OMACOR [Suspect]
     Indication: DRUG USE FOR UNKNOWN INDICATION
     Dosage: 1 GM;BID;PO
     Route: 048
     Dates: start: 20051001
  2. LEVEMIR [Concomitant]
  3. AVANDAMET [Concomitant]
  4. PRINZIDE [Concomitant]

REACTIONS (3)
  - ABDOMINAL DISTENSION [None]
  - WAIST CIRCUMFERENCE INCREASED [None]
  - WEIGHT INCREASED [None]
